FAERS Safety Report 11240525 (Version 1)
Quarter: 2015Q3

REPORT INFORMATION
  Report Type: Spontaneous
  Country: IT (occurrence: IT)
  Receive Date: 20150706
  Receipt Date: 20150706
  Transmission Date: 20151125
  Serious: Yes (Hospitalization)
  Sender: FDA-Public Use
  Company Number: PHHY2015IT080365

PATIENT
  Age: 73 Year
  Sex: Male

DRUGS (2)
  1. SUNITINIB MALATE. [Concomitant]
     Active Substance: SUNITINIB MALATE
     Indication: THYROID CANCER
     Dosage: UNK
     Route: 065
     Dates: start: 20110401, end: 20130304
  2. ZOMETA [Suspect]
     Active Substance: ZOLEDRONIC ACID
     Indication: METASTASES TO BONE
     Dosage: 4 MG, QMO (MONTHLY)
     Route: 042
     Dates: start: 20111015, end: 20121028

REACTIONS (2)
  - Purulent discharge [Unknown]
  - Osteonecrosis of jaw [Recovered/Resolved with Sequelae]

NARRATIVE: CASE EVENT DATE: 20121128
